FAERS Safety Report 9475228 (Version 1)
Quarter: 2013Q3

REPORT INFORMATION
  Report Type: Spontaneous
  Country: US (occurrence: US)
  Receive Date: 20130825
  Receipt Date: 20130825
  Transmission Date: 20140515
  Serious: No
  Sender: FDA-Public Use
  Company Number: US-009507513-1308USA005431

PATIENT
  Sex: Female

DRUGS (1)
  1. FOLLISTIM AQ CARTRIDGE [Suspect]

REACTIONS (2)
  - Drug dose omission [Unknown]
  - Product packaging issue [Unknown]
